FAERS Safety Report 6305656-4 (Version None)
Quarter: 2009Q3

REPORT INFORMATION
  Report Type: 
  Country: None (occurrence: None)
  Receive Date: 20090807
  Receipt Date: 20090723
  Transmission Date: 20100115
  Serious: Yes (Hospitalization)
  Sender: FDA-Public Use
  Company Number: ADE2009-0767

PATIENT
  Age: 8 Year
  Sex: Male

DRUGS (2)
  1. RISPERIDONE [Suspect]
     Indication: AGITATION
     Dosage: 0.25 MG, DAILY,
  2. RISPERIDONE [Suspect]
     Indication: SLEEP DISORDER
     Dosage: 0.25 MG, DAILY,

REACTIONS (11)
  - HEADACHE [None]
  - HEART RATE IRREGULAR [None]
  - HYDROCEPHALUS [None]
  - HYPOKINESIA [None]
  - LOSS OF CONSCIOUSNESS [None]
  - MENTAL IMPAIRMENT [None]
  - NAUSEA [None]
  - SINUS ARREST [None]
  - SINUS BRADYCARDIA [None]
  - SYNCOPE [None]
  - VOMITING [None]
